FAERS Safety Report 5078710-5 (Version None)
Quarter: 2006Q3

REPORT INFORMATION
  Report Type: 
  Country: None (occurrence: None)
  Receive Date: 20060809
  Receipt Date: 20060809
  Transmission Date: 20061208
  Serious: No
  Sender: FDA-Public Use
  Company Number: None

PATIENT
  Sex: Female

DRUGS (2)
  1. ALBUTEROL [Suspect]
     Indication: ASTHMA
     Dosage: UD INHALE
     Route: 055
     Dates: start: 20060619
  2. ALBUTEROL [Suspect]
     Indication: ASTHMA
     Dosage: UD INHALE
     Route: 055
     Dates: start: 20060724

REACTIONS (3)
  - BURNING SENSATION [None]
  - DRUG EFFECT DECREASED [None]
  - THERAPEUTIC RESPONSE UNEXPECTED WITH DRUG SUBSTITUTION [None]
